FAERS Safety Report 14217557 (Version 1)
Quarter: 2017Q4

REPORT INFORMATION
  Report Type: Spontaneous
  Country: US (occurrence: US)
  Receive Date: 20171123
  Receipt Date: 20171123
  Transmission Date: 20180321
  Serious: No
  Sender: FDA-Public Use
  Company Number: US-B.I. PHARMACEUTICALS,INC./RIDGEFIELD-2017-BI-061699

PATIENT
  Age: 61 Year
  Sex: Female

DRUGS (9)
  1. HYDROXYCHLOROQUINE [Concomitant]
     Active Substance: HYDROXYCHLOROQUINE
     Indication: SYSTEMIC LUPUS ERYTHEMATOSUS
     Dosage: ONCE DAILY;  FORM STRENGTH: 300MG; FORMULATION: TABLET
     Route: 048
     Dates: start: 2016
  2. GLIMEPIRIDE. [Concomitant]
     Active Substance: GLIMEPIRIDE
     Indication: TYPE 2 DIABETES MELLITUS
     Dosage: BID;  FORM STRENGTH: 4MG; FORMULATION: CAPLET
     Route: 048
     Dates: start: 2016
  3. CLONAZEPAM 1MG BID 2012 [Concomitant]
     Indication: ANXIETY
     Dosage: BID;  FORM STRENGTH: 1MG; FORMULATION: TABLET
     Route: 048
     Dates: start: 2012
  4. MIRTAZAPINE. [Concomitant]
     Active Substance: MIRTAZAPINE
     Indication: INSOMNIA
     Dosage: ONCE DAILY;  FORM STRENGTH: 15MG; FORMULATION: CAPLET
     Route: 048
     Dates: start: 2016
  5. JARDIANCE [Suspect]
     Active Substance: EMPAGLIFLOZIN
     Indication: TYPE 2 DIABETES MELLITUS
     Dosage: ONCE DAILY;  FORM STRENGTH: 25 MG; FORMULATION: TABLET? ADMINISTRATION CORRECT? YES ?ACTION(S) TAKEN
     Route: 048
     Dates: start: 20171015
  6. VENLAFAXIN HYDROCHLORIDE [Concomitant]
     Indication: DEPRESSION
     Dosage: BID;  FORM STRENGTH: 150MG; FORMULATION: CAPSULE
     Route: 048
     Dates: start: 2012
  7. LISINOPRIL HCTZ [Concomitant]
     Active Substance: HYDROCHLOROTHIAZIDE\LISINOPRIL
     Indication: HYPERTENSION
     Dosage: ONCE DAILY;  FORM STRENGTH: 20/25MG; FORMULATION: TABLET
     Route: 048
     Dates: start: 1998
  8. HYDROXYZINE [Concomitant]
     Active Substance: HYDROXYZINE HYDROCHLORIDE
     Indication: ANXIETY
     Dosage: AS NEEDED UP TO 3 TABLETS DAILY;  FORM STRENGTH: 50MG; FORMULATION: TABLET
     Route: 048
     Dates: start: 2012
  9. SIMVASTATIN. [Concomitant]
     Active Substance: SIMVASTATIN
     Indication: BLOOD CHOLESTEROL INCREASED
     Dosage: ONCE DAILY;  FORM STRENGTH: 20MG; FORMULATION: CAPLET
     Route: 048
     Dates: start: 2015

REACTIONS (3)
  - Dysstasia [Recovered/Resolved]
  - Anxiety [Not Recovered/Not Resolved]
  - Somnolence [Recovered/Resolved]

NARRATIVE: CASE EVENT DATE: 20171114
